FAERS Safety Report 24962282 (Version 1)
Quarter: 2025Q1

REPORT INFORMATION
  Report Type: Spontaneous
  Country: US (occurrence: US)
  Receive Date: 20250212
  Receipt Date: 20250212
  Transmission Date: 20250409
  Serious: No
  Sender: PFIZER
  Company Number: US-PFIZER INC-PV202500016220

PATIENT
  Age: 69 Year
  Sex: Female

DRUGS (10)
  1. SOLU-MEDROL [Suspect]
     Active Substance: METHYLPREDNISOLONE SODIUM SUCCINATE
     Route: 042
  2. OCREVUS [Concomitant]
     Active Substance: OCRELIZUMAB
  3. JUBLIA [Concomitant]
     Active Substance: EFINACONAZOLE
  4. KETOCONAZOLE [Concomitant]
     Active Substance: KETOCONAZOLE
  5. LEVOTHYROXINE [Concomitant]
     Active Substance: LEVOTHYROXINE
  6. MOTRIN IB [Concomitant]
     Active Substance: IBUPROFEN
  7. VITAMIN D3 [Concomitant]
     Active Substance: CHOLECALCIFEROL
  8. VOLTAREN ARTHRITIS PAIN [Concomitant]
     Active Substance: DICLOFENAC SODIUM
  9. LYRICA [Concomitant]
     Active Substance: PREGABALIN
  10. VUMERITY [Concomitant]
     Active Substance: DIROXIMEL FUMARATE

REACTIONS (1)
  - Central nervous system lesion [Unknown]
